FAERS Safety Report 15941371 (Version 1)
Quarter: 2019Q1

REPORT INFORMATION
  Report Type: Spontaneous
  Country: US (occurrence: US)
  Receive Date: 20190208
  Receipt Date: 20190208
  Transmission Date: 20190417
  Serious: No
  Sender: FDA-Public Use
  Company Number: US-B.I. PHARMACEUTICALS,INC./RIDGEFIELD-2019-BI-005021

PATIENT
  Age: 51 Week
  Sex: Female

DRUGS (4)
  1. SIFROL [Suspect]
     Active Substance: PRAMIPEXOLE
     Indication: PARKINSON^S DISEASE
     Route: 065
  2. SIFROL [Suspect]
     Active Substance: PRAMIPEXOLE
     Route: 065
  3. SIFROL [Suspect]
     Active Substance: PRAMIPEXOLE
     Route: 065
  4. SIFROL [Suspect]
     Active Substance: PRAMIPEXOLE
     Route: 065

REACTIONS (2)
  - Gambling disorder [Unknown]
  - Impulse-control disorder [Unknown]
